FAERS Safety Report 25712685 (Version 2)
Quarter: 2025Q3

REPORT INFORMATION
  Report Type: Report from Study
  Country: US (occurrence: US)
  Receive Date: 20250821
  Receipt Date: 20250827
  Transmission Date: 20251021
  Serious: Yes (Other)
  Sender: ALEXION PHARMACEUTICALS
  Company Number: US-AstraZeneca-CH-00934437A

PATIENT
  Age: 54 Year
  Sex: Female

DRUGS (2)
  1. TEZEPELUMAB [Suspect]
     Active Substance: TEZEPELUMAB
     Indication: Asthma
  2. TEZEPELUMAB [Suspect]
     Active Substance: TEZEPELUMAB

REACTIONS (15)
  - Wheezing [Recovering/Resolving]
  - Cough [Recovering/Resolving]
  - Asthma [Recovering/Resolving]
  - Type 2 diabetes mellitus [Unknown]
  - Dyspnoea [Recovering/Resolving]
  - Fatigue [Unknown]
  - Pulmonary embolism [Unknown]
  - Epistaxis [Unknown]
  - Obstructive sleep apnoea syndrome [Unknown]
  - Rhinitis allergic [Unknown]
  - Obesity [Unknown]
  - Spina bifida [Unknown]
  - Gastrooesophageal reflux disease [Unknown]
  - Pneumonia [Unknown]
  - Enterocolitis [Unknown]
